FAERS Safety Report 5515528-0 (Version None)
Quarter: 2007Q4

REPORT INFORMATION
  Report Type: 
  Country: None (occurrence: None)
  Receive Date: 20071113
  Receipt Date: 20070319
  Transmission Date: 20080405
  Serious: No
  Sender: FDA-Public Use
  Company Number: A0643718A

PATIENT
  Age: 78 Year
  Sex: Male

DRUGS (9)
  1. COREG [Suspect]
     Dosage: 6.25MG TWICE PER DAY
     Route: 048
  2. PLAVIX [Concomitant]
  3. ZOLOFT [Concomitant]
  4. ACCUPRIL [Concomitant]
  5. BUSPAR [Concomitant]
  6. PROTEGRA [Concomitant]
  7. FOLTX [Concomitant]
  8. ASPIRIN [Concomitant]
  9. LIPITOR [Concomitant]

REACTIONS (4)
  - BLOOD PRESSURE DECREASED [None]
  - DIZZINESS POSTURAL [None]
  - FATIGUE [None]
  - NAUSEA [None]
